FAERS Safety Report 17045134 (Version 1)
Quarter: 2019Q4

REPORT INFORMATION
  Report Type: Spontaneous
  Country: US (occurrence: US)
  Receive Date: 20191118
  Receipt Date: 20191118
  Transmission Date: 20200122
  Serious: No
  Sender: FDA-Public Use
  Company Number: US-ASCENT PHARMACEUTICALS, INC.-2076970

PATIENT

DRUGS (1)
  1. HYDROCODONE BITARTRATE AND ACETAMINOPHEN [Suspect]
     Active Substance: ACETAMINOPHEN\HYDROCODONE BITARTRATE
     Indication: PAIN
     Route: 048

REACTIONS (5)
  - Dizziness [Unknown]
  - Drug ineffective [Unknown]
  - Abdominal pain upper [Unknown]
  - Diarrhoea [Unknown]
  - Malaise [Unknown]
